FAERS Safety Report 5899277-5 (Version None)
Quarter: 2008Q3

REPORT INFORMATION
  Report Type: 
  Country: None (occurrence: None)
  Receive Date: 20080925
  Receipt Date: 20080918
  Transmission Date: 20090109
  Serious: Yes (Hospitalization)
  Sender: FDA-Public Use
  Company Number: DE-GILEAD-E2B_00000186

PATIENT
  Sex: Male
  Weight: 98.7 kg

DRUGS (9)
  1. LETAIRIS [Suspect]
     Indication: PULMONARY ARTERIAL HYPERTENSION
     Dosage: 5MG PER DAY
     Route: 048
     Dates: start: 20080101, end: 20080101
  2. REVATIO [Concomitant]
     Route: 048
  3. ILOPROST [Concomitant]
     Route: 042
  4. TRACLEER [Concomitant]
     Indication: PULMONARY ARTERIAL HYPERTENSION
     Route: 048
     Dates: end: 20080101
  5. MARCUMAR [Concomitant]
     Indication: PULMONARY ARTERIAL HYPERTENSION
     Route: 048
  6. DIURETIC [Concomitant]
     Indication: PULMONARY ARTERIAL HYPERTENSION
     Route: 065
  7. OXYGEN [Concomitant]
     Route: 065
  8. INSULIN [Concomitant]
     Indication: DIABETES MELLITUS
     Route: 065
     Dates: start: 20010101
  9. METHADONE HCL [Concomitant]
     Indication: DRUG DEPENDENCE
     Route: 065

REACTIONS (5)
  - ANGIOEDEMA [None]
  - DRUG INTOLERANCE [None]
  - FLUID RETENTION [None]
  - RENAL FAILURE ACUTE [None]
  - WEIGHT INCREASED [None]
